FAERS Safety Report 8664629 (Version 5)
Quarter: 2012Q4

REPORT INFORMATION
  Report Type: 
  Country: US (occurrence: US)
  Receive Date: 20120713
  Receipt Date: 20121119
  Transmission Date: 20130627
  Serious: Yes (Other)
  Sender: FDA-Public Use
  Company Number: US-ASTRAZENECA-2012SE17271

PATIENT
  Age: 57 Year
  Sex: Female

DRUGS (5)
  1. NEXIUM [Suspect]
     Route: 048
  2. NEXIUM [Suspect]
     Route: 048
  3. PRILOSEC [Suspect]
     Route: 048
  4. PRILOSEC OTC [Suspect]
     Route: 048
  5. CYMBALTA [Suspect]

REACTIONS (18)
  - Nerve compression [Unknown]
  - Intervertebral disc protrusion [Unknown]
  - Fibromyalgia [Unknown]
  - Neuropathy peripheral [Unknown]
  - Fall [Unknown]
  - Parkinson^s disease [Unknown]
  - Hypersomnia [Unknown]
  - Influenza [Unknown]
  - Adverse event [Unknown]
  - Dyspepsia [Unknown]
  - Insomnia [Unknown]
  - Oedema peripheral [Unknown]
  - Vomiting [Unknown]
  - Pain [Unknown]
  - Abdominal pain upper [Unknown]
  - Drug effect decreased [Unknown]
  - Drug dose omission [Unknown]
  - Intentional drug misuse [Unknown]
